FAERS Safety Report 4882817-2 (Version None)
Quarter: 2005Q4

REPORT INFORMATION
  Report Type: 
  Country: None (occurrence: None)
  Receive Date: 20051201
  Receipt Date: 20050918
  Transmission Date: 20060501
  Serious: No
  Sender: FDA-Public Use
  Company Number: 2005PV002179

PATIENT
  Age: 58 Year
  Sex: Male
  Weight: 138.3471 kg

DRUGS (6)
  1. BYETTA [Suspect]
     Indication: DIABETES MELLITUS NON-INSULIN-DEPENDENT
     Dosage: 5 MCG;BID;SC
     Route: 058
     Dates: start: 20050916
  2. AVANDIA [Concomitant]
  3. ASPIRIN [Concomitant]
  4. AMARYL [Concomitant]
  5. COZAAR [Concomitant]
  6. ZOCOR [Concomitant]

REACTIONS (2)
  - FLUSHING [None]
  - INJECTION SITE PAIN [None]
